FAERS Safety Report 13002599 (Version 1)
Quarter: 2016Q4

REPORT INFORMATION
  Report Type: Report from Study
  Country: JP (occurrence: JP)
  Receive Date: 20161206
  Receipt Date: 20161206
  Transmission Date: 20170207
  Serious: Yes (Hospitalization)
  Sender: FDA-Public Use
  Company Number: JP-DSJP-DSJ-2016-125887

PATIENT

DRUGS (5)
  1. PLETAAL [Concomitant]
     Active Substance: CILOSTAZOL
     Dosage: 200MG/DAY
     Route: 048
     Dates: end: 20160425
  2. ARTIST [Concomitant]
     Active Substance: CARVEDILOL
     Dosage: 2.5MG/DAY
     Route: 048
     Dates: start: 20160406
  3. EDOXABAN [Suspect]
     Active Substance: EDOXABAN TOSYLATE
     Indication: ATRIAL FIBRILLATION
     Dosage: 30 MG, QD
     Route: 048
     Dates: start: 20160426, end: 20160727
  4. OLMETEC [Concomitant]
     Active Substance: OLMESARTAN MEDOXOMIL
     Dosage: 20MG/DAY
     Route: 048
     Dates: start: 20160426
  5. BAYASPIRIN [Concomitant]
     Active Substance: ASPIRIN
     Dosage: 100MG/DAY
     Route: 048
     Dates: end: 20160425

REACTIONS (4)
  - Chronic kidney disease [Not Recovered/Not Resolved]
  - Anaemia [Recovered/Resolved]
  - Anaemia [Recovered/Resolved]
  - Penile haemorrhage [Recovering/Resolving]

NARRATIVE: CASE EVENT DATE: 20160513
